FAERS Safety Report 23138711 (Version 6)
Quarter: 2024Q1

REPORT INFORMATION
  Report Type: Report from Study
  Country: US (occurrence: US)
  Receive Date: 20231102
  Receipt Date: 20240322
  Transmission Date: 20240409
  Serious: Yes (Hospitalization, Other)
  Sender: FDA-Public Use
  Company Number: US-ABBVIE-5474560

PATIENT
  Age: 81 Year
  Sex: Male
  Weight: 84.821 kg

DRUGS (7)
  1. IMBRUVICA [Suspect]
     Active Substance: IBRUTINIB
     Indication: Chronic lymphocytic leukaemia
     Dosage: MISSED DOSES?STRENGTH: 420 MG
     Route: 048
     Dates: start: 201510
  2. IMBRUVICA [Suspect]
     Active Substance: IBRUTINIB
     Indication: Chronic lymphocytic leukaemia
     Dosage: STRENGTH: 420 MILLIGRAM
     Route: 048
     Dates: start: 202103
  3. IMBRUVICA [Suspect]
     Active Substance: IBRUTINIB
     Indication: Chronic lymphocytic leukaemia
     Dosage: STRENGTH: 420 MILLIGRAM
     Route: 048
     Dates: start: 202103
  4. IMBRUVICA [Suspect]
     Active Substance: IBRUTINIB
     Indication: Chronic lymphocytic leukaemia
     Dosage: STRENGTH: 420 MILLIGRAM
     Route: 048
  5. CHLOROTHIAZIDE [Concomitant]
     Active Substance: CHLOROTHIAZIDE
     Indication: Product used for unknown indication
     Dosage: FREQUENCY TEXT: DAILY
  6. MONTELUKAST [Concomitant]
     Active Substance: MONTELUKAST SODIUM
     Indication: Product used for unknown indication
  7. LOSARTAN [Concomitant]
     Active Substance: LOSARTAN
     Indication: Product used for unknown indication

REACTIONS (8)
  - Hip fracture [Recovered/Resolved]
  - Pelvic fracture [Recovered/Resolved]
  - Blood magnesium decreased [Recovered/Resolved]
  - Mental disorder [Recovered/Resolved]
  - Erythema [Unknown]
  - Emotional disorder [Unknown]
  - Pain [Recovered/Resolved]
  - Fall [Unknown]

NARRATIVE: CASE EVENT DATE: 20231001
